FAERS Safety Report 8370150-6 (Version None)
Quarter: 2012Q2

REPORT INFORMATION
  Report Type: 
  Country: None (occurrence: None)
  Receive Date: 20120518
  Receipt Date: 20120511
  Transmission Date: 20120825
  Serious: Yes (Hospitalization, Other)
  Sender: FDA-Public Use
  Company Number: US-JNJFOC-20120108013

PATIENT
  Sex: Male

DRUGS (9)
  1. LEVAQUIN [Suspect]
     Route: 048
     Dates: start: 20070101
  2. LEVAQUIN [Suspect]
     Route: 048
     Dates: start: 20080101
  3. LEVAQUIN [Suspect]
     Route: 048
     Dates: start: 20080101
  4. LEVAQUIN [Suspect]
     Route: 048
     Dates: start: 20070101
  5. LEVAQUIN [Suspect]
     Indication: BACTERIAL INFECTION
     Route: 048
     Dates: start: 20050101
  6. LEVAQUIN [Suspect]
     Indication: FISTULA
     Route: 048
     Dates: start: 20050101
  7. LEVAQUIN [Suspect]
     Indication: ANTIBIOTIC THERAPY
     Route: 048
     Dates: start: 20050101
  8. LEVAQUIN [Suspect]
     Route: 048
     Dates: start: 20070101
  9. LEVAQUIN [Suspect]
     Route: 048
     Dates: start: 20080101

REACTIONS (6)
  - BURSITIS [None]
  - LIGAMENT RUPTURE [None]
  - ROTATOR CUFF SYNDROME [None]
  - MENISCUS LESION [None]
  - ANXIETY [None]
  - DEPRESSION [None]
